FAERS Safety Report 14648666 (Version 3)
Quarter: 2018Q3

REPORT INFORMATION
  Report Type: Spontaneous
  Country: US (occurrence: US)
  Receive Date: 20180316
  Receipt Date: 20180920
  Transmission Date: 20181010
  Serious: Yes (Other)
  Sender: FDA-Public Use
  Company Number: US-JNJFOC-20180313086

PATIENT
  Age: 78 Year
  Sex: Female
  Weight: 78.47 kg

DRUGS (5)
  1. XARELTO [Suspect]
     Active Substance: RIVAROXABAN
     Indication: ATRIAL FIBRILLATION
     Dosage: ONCE A DAY IN THE EVENING.
     Route: 048
     Dates: start: 201802, end: 20180221
  2. POTASSIUM [Concomitant]
     Active Substance: POTASSIUM
     Route: 065
  3. XARELTO [Suspect]
     Active Substance: RIVAROXABAN
     Indication: CEREBROVASCULAR ACCIDENT PROPHYLAXIS
     Dosage: ONCE A DAY IN THE EVENING.
     Route: 048
     Dates: start: 201802, end: 20180221
  4. ATENOLOL. [Concomitant]
     Active Substance: ATENOLOL
     Route: 065
  5. LASIX [Concomitant]
     Active Substance: FUROSEMIDE
     Route: 065

REACTIONS (3)
  - Epistaxis [Recovered/Resolved]
  - Increased viscosity of upper respiratory secretion [Recovered/Resolved]
  - High frequency ablation [Unknown]

NARRATIVE: CASE EVENT DATE: 20180222
